FAERS Safety Report 14659300 (Version 1)
Quarter: 2018Q1

REPORT INFORMATION
  Report Type: Spontaneous
  Country: DE (occurrence: DE)
  Receive Date: 20180320
  Receipt Date: 20180320
  Transmission Date: 20180509
  Serious: Yes (Disabling)
  Sender: FDA-Public Use
  Company Number: PHHY2018DE047800

PATIENT
  Age: 42 Year
  Sex: Male
  Weight: 99 kg

DRUGS (2)
  1. SALBUHEXAL [Suspect]
     Active Substance: ALBUTEROL
     Indication: BRONCHITIS
     Dosage: UNK (2-2-2-2)
     Route: 055
     Dates: start: 20180301, end: 20180307
  2. BUDES N [Suspect]
     Active Substance: BUDESONIDE
     Indication: BRONCHITIS
     Dosage: 0.2 MG, UNK (2-0-2)
     Route: 055
     Dates: start: 20180301, end: 20180307

REACTIONS (3)
  - Dizziness [Recovered/Resolved]
  - Visual impairment [Recovered/Resolved]
  - Asthenia [Recovered/Resolved]
